FAERS Safety Report 8886437 (Version 2)
Quarter: 2013Q1

REPORT INFORMATION
  Report Type: Spontaneous
  Country: CA (occurrence: CA)
  Receive Date: 20121105
  Receipt Date: 20130115
  Transmission Date: 20140127
  Serious: Yes (Hospitalization)
  Sender: FDA-Public Use
  Company Number: PHHY2012CA086238

PATIENT
  Age: 63 Year
  Sex: Female

DRUGS (2)
  1. ZOMETA [Suspect]
     Indication: BREAST CANCER METASTATIC
     Dosage: 4 MG, ONCE A MONTH
     Route: 042
     Dates: start: 20080703
  2. ZOMETA [Suspect]
     Dosage: 3 MG, ONCE A MONTH
     Route: 042
     Dates: end: 20121102

REACTIONS (3)
  - Bowel movement irregularity [Unknown]
  - Abdominal pain [Unknown]
  - Renal disorder [Unknown]
